FAERS Safety Report 16111192 (Version 1)
Quarter: 2019Q1

REPORT INFORMATION
  Report Type: Spontaneous
  Country: US (occurrence: US)
  Receive Date: 20190325
  Receipt Date: 20190325
  Transmission Date: 20190418
  Serious: No
  Sender: FDA-Public Use
  Company Number: US-ZYDUS-019522

PATIENT
  Age: 72 Year
  Sex: Female

DRUGS (1)
  1. ATENOLOL. [Suspect]
     Active Substance: ATENOLOL
     Indication: SUPRAVENTRICULAR TACHYCARDIA
     Dosage: 50 MG (1/2 TABLET)
     Dates: start: 201712, end: 201712

REACTIONS (5)
  - Palpitations [Recovered/Resolved]
  - Balance disorder [Recovered/Resolved]
  - Hypoacusis [Recovered/Resolved]
  - Supraventricular tachycardia [Recovered/Resolved]
  - Vestibular migraine [Recovered/Resolved]
